FAERS Safety Report 16117036 (Version 1)
Quarter: 2019Q2

REPORT INFORMATION
  Report Type: Spontaneous
  Country: US (occurrence: US)
  Receive Date: 20190325
  Receipt Date: 20190325
  Transmission Date: 20190711
  Serious: No
  Sender: FDA-Public Use
  Company Number: None

PATIENT
  Age: 62 Year
  Sex: Male
  Weight: 95.85 kg

DRUGS (1)
  1. LISINOPRIL 20 MG [Suspect]
     Active Substance: LISINOPRIL
     Indication: BLOOD PRESSURE MEASUREMENT
     Route: 048
     Dates: start: 20190320, end: 20190325

REACTIONS (4)
  - Toxicity to various agents [None]
  - Dysgeusia [None]
  - Product contamination [None]
  - Nausea [None]

NARRATIVE: CASE EVENT DATE: 20190321
